FAERS Safety Report 9511169 (Version 1)
Quarter: 2013Q1

REPORT INFORMATION
  Report Type: Spontaneous
  Country: US (occurrence: None)
  Receive Date: 20130305
  Receipt Date: 20130305
  Transmission Date: 20140127
  Serious: Yes (Other)
  Sender: FDA-Public Use
  Company Number: 163-21880-12120379

PATIENT
  Age: 63 Year
  Sex: Female
  Weight: 89.81 kg

DRUGS (10)
  1. REVLIMID [Suspect]
     Indication: PLASMA CELL MYELOMA
     Dosage: 10 MG, 1 IN 1 D, PO
     Route: 048
     Dates: start: 20110325
  2. CLONAZEPAM (CLONAZEPAM) [Concomitant]
  3. ACYCLOVIER (ACICLOVIR) [Concomitant]
  4. FLUTICASONE PROPIONATE (FLUTICASONE PROPIONATE) [Concomitant]
  5. HUMALOG (INSULIN LISPRO) [Concomitant]
  6. HYDROCORTISONE (HYDROCORTISONE) [Concomitant]
  7. LANTUS (INSULIN GLARGINE) [Concomitant]
  8. LIPITOR (ATORVASTATIN) [Concomitant]
  9. PRILOSEC [Concomitant]
  10. SYMBICORT (SYMBICORT TURBUHALER ^DRACO^) [Concomitant]

REACTIONS (13)
  - Muscle spasms [None]
  - Tremor [None]
  - Obstructive airways disorder [None]
  - Upper respiratory tract infection [None]
  - Sinusitis [None]
  - Erythema [None]
  - Dry skin [None]
  - Decreased appetite [None]
  - Fungal infection [None]
  - Dermal cyst [None]
  - Feeling hot [None]
  - Back pain [None]
  - Gastrointestinal infection [None]
